FAERS Safety Report 24369776 (Version 1)
Quarter: 2024Q3

REPORT INFORMATION
  Report Type: Spontaneous
  Country: GB (occurrence: GB)
  Receive Date: 20240927
  Receipt Date: 20240927
  Transmission Date: 20241017
  Serious: Yes (Life-Threatening, Hospitalization, Other)
  Sender: CELLTRION
  Company Number: None

PATIENT

DRUGS (3)
  1. INFLIXIMAB [Suspect]
     Active Substance: INFLIXIMAB
     Indication: Crohn^s disease
     Dosage: 400 MG
     Dates: start: 20240905, end: 20240906
  2. CITALOPRAM [Concomitant]
     Active Substance: CITALOPRAM
     Dosage: 40 MG, EVERY 1 DAY
  3. DESOGESTREL [Concomitant]
     Active Substance: DESOGESTREL
     Dosage: 75 MICROGRAM, 1 DAY

REACTIONS (10)
  - Acute kidney injury [Not Recovered/Not Resolved]
  - Haemolytic anaemia [Not Recovered/Not Resolved]
  - Thrombocytopenia [Not Recovered/Not Resolved]
  - Urine output decreased [Unknown]
  - Haematuria [Unknown]
  - Proteinuria [Unknown]
  - Contusion [Unknown]
  - Swelling face [Unknown]
  - Joint swelling [Unknown]
  - Lethargy [Unknown]

NARRATIVE: CASE EVENT DATE: 20240909
